FAERS Safety Report 11183456 (Version 1)
Quarter: 2015Q2

REPORT INFORMATION
  Report Type: Spontaneous
  Country: US (occurrence: US)
  Receive Date: 20150612
  Receipt Date: 20150612
  Transmission Date: 20150821
  Serious: No
  Sender: FDA-Public Use
  Company Number: US-LEO PHARMA-234621

PATIENT
  Sex: Male

DRUGS (1)
  1. PICATO [Suspect]
     Active Substance: INGENOL MEBUTATE
     Indication: ACTINIC KERATOSIS
     Route: 061
     Dates: start: 20150516, end: 20150518

REACTIONS (8)
  - Application site vesicles [Recovering/Resolving]
  - Drug administered at inappropriate site [Unknown]
  - Incorrect drug administration duration [Unknown]
  - Application site exfoliation [Not Recovered/Not Resolved]
  - Application site inflammation [Recovering/Resolving]
  - Application site pustules [Recovered/Resolved]
  - Application site scab [Not Recovered/Not Resolved]
  - Application site bruise [Not Recovered/Not Resolved]
